FAERS Safety Report 7056887-X (Version None)
Quarter: 2010Q4

REPORT INFORMATION
  Report Type: 
  Country: None (occurrence: None)
  Receive Date: 20101022
  Receipt Date: 20101011
  Transmission Date: 20110411
  Serious: Yes (Death, Hospitalization, Other)
  Sender: FDA-Public Use
  Company Number: US-PAR PHARMACEUTICAL, INC-2010SCPR002191

PATIENT
  Age: 36 Year
  Sex: Female

DRUGS (5)
  1. HYDRALAZINE [Suspect]
     Indication: HYPERTENSION
     Dosage: 100 MG PER DAY
  2. ATENOLOL [Concomitant]
     Indication: HYPERTENSION
     Dosage: UNK
     Route: 065
  3. CLONIDINE [Concomitant]
     Indication: HYPERTENSION
     Dosage: UNK
     Route: 065
  4. NIFEDIPINE [Concomitant]
     Indication: HYPERTENSION
     Dosage: UNK
     Route: 065
  5. FOSINOPRIL SODIUM [Concomitant]
     Indication: HYPERTENSION
     Dosage: UNK
     Route: 065

REACTIONS (7)
  - CONNECTIVE TISSUE DISORDER [None]
  - DEATH [None]
  - DELIRIUM [None]
  - HYPOXIA [None]
  - INFECTION [None]
  - LUPUS PNEUMONITIS [None]
  - LYMPHOMA [None]
